FAERS Safety Report 21677140 (Version 2)
Quarter: 2022Q4

REPORT INFORMATION
  Report Type: Report from Study
  Country: US (occurrence: US)
  Receive Date: 20221203
  Receipt Date: 20221213
  Transmission Date: 20230112
  Serious: Yes (Hospitalization, Other)
  Sender: FDA-Public Use
  Company Number: US-ABBVIE-22K-163-4453552-00

PATIENT
  Age: 65 Year
  Sex: Male
  Weight: 106.5 kg

DRUGS (6)
  1. VENCLEXTA [Suspect]
     Active Substance: VENETOCLAX
     Indication: Chronic lymphocytic leukaemia
     Dosage: STRENGTH: 100 MILLIGRAM
     Route: 048
     Dates: start: 202210, end: 202211
  2. VENCLEXTA [Suspect]
     Active Substance: VENETOCLAX
     Indication: Chronic lymphocytic leukaemia
     Dosage: DOSE INCREASED, STRENGTH: 100 MILLIGRAM
     Route: 048
     Dates: start: 20220607, end: 202207
  3. LISINOPRIL [Concomitant]
     Active Substance: LISINOPRIL
     Indication: Hypertension
  4. RITUXAN [Suspect]
     Active Substance: RITUXIMAB
     Indication: Chronic lymphocytic leukaemia
     Route: 042
     Dates: start: 20220714
  5. FLOMAX [Concomitant]
     Active Substance: TAMSULOSIN HYDROCHLORIDE
     Indication: Prostatic disorder
  6. METOPROLOL [Concomitant]
     Active Substance: METOPROLOL
     Indication: Hypertension

REACTIONS (15)
  - White blood cell count decreased [Recovered/Resolved]
  - Sepsis [Recovered/Resolved]
  - Colitis [Recovering/Resolving]
  - Blood potassium decreased [Recovered/Resolved]
  - Platelet count decreased [Recovering/Resolving]
  - Intestinal obstruction [Recovering/Resolving]
  - Feeling abnormal [Not Recovered/Not Resolved]
  - Diverticulitis [Recovering/Resolving]
  - Nausea [Unknown]
  - Clostridium difficile infection [Recovered/Resolved]
  - Immunodeficiency [Unknown]
  - Constipation [Recovering/Resolving]
  - Faeces soft [Not Recovered/Not Resolved]
  - Immunodeficiency [Recovering/Resolving]
  - White blood cell count decreased [Unknown]

NARRATIVE: CASE EVENT DATE: 20220701
